FAERS Safety Report 19746625 (Version 6)
Quarter: 2025Q1

REPORT INFORMATION
  Report Type: Report from Study
  Country: JP (occurrence: JP)
  Receive Date: 20210826
  Receipt Date: 20250305
  Transmission Date: 20250409
  Serious: Yes (Hospitalization, Other)
  Sender: TAKEDA
  Company Number: JP-TAKEDA-2021TJP069701

PATIENT
  Sex: Female

DRUGS (6)
  1. ICATIBANT [Suspect]
     Active Substance: ICATIBANT ACETATE
     Indication: Hereditary angioedema
  2. ICATIBANT [Suspect]
     Active Substance: ICATIBANT ACETATE
  3. ICATIBANT [Suspect]
     Active Substance: ICATIBANT ACETATE
  4. ORLADEYO [Suspect]
     Active Substance: BEROTRALSTAT HYDROCHLORIDE
     Indication: Hereditary angioedema
  5. TRANEXAMIC ACID [Concomitant]
     Active Substance: TRANEXAMIC ACID
     Indication: Product used for unknown indication
  6. TRANEXAMIC ACID [Concomitant]
     Active Substance: TRANEXAMIC ACID
     Indication: Laryngeal oedema

REACTIONS (14)
  - Coronavirus infection [Recovering/Resolving]
  - Laryngeal oedema [Unknown]
  - Hereditary angioedema [Unknown]
  - Physical deconditioning [Unknown]
  - Pharyngeal oedema [Recovering/Resolving]
  - Nasopharyngitis [Unknown]
  - Tooth disorder [Unknown]
  - Dyspnoea [Unknown]
  - Hereditary angioedema [Unknown]
  - Vomiting [Unknown]
  - Malaise [Unknown]
  - Hepatic function abnormal [Unknown]
  - Headache [Unknown]
  - Urticaria [Unknown]

NARRATIVE: CASE EVENT DATE: 20200101
